FAERS Safety Report 7861988-X (Version None)
Quarter: 2011Q4

REPORT INFORMATION
  Report Type: 
  Country: None (occurrence: None)
  Receive Date: 20111027
  Receipt Date: 20101122
  Transmission Date: 20120403
  Serious: No
  Sender: FDA-Public Use
  Company Number: US-AMGEN-USASP2010006145

PATIENT
  Age: 46 Year
  Sex: Female

DRUGS (3)
  1. ENBREL [Suspect]
     Indication: RHEUMATOID ARTHRITIS
     Dosage: 50 MG, QWK
     Dates: start: 20081007
  2. PLAQUENIL [Concomitant]
     Dosage: 2 MG, QD
     Dates: start: 20081007
  3. METHOTREXATE [Concomitant]
     Dosage: 6 MG, QWK
     Dates: start: 20081007

REACTIONS (3)
  - INJECTION SITE PAIN [None]
  - NASAL SEPTUM DEVIATION [None]
  - TONSILLITIS [None]
